FAERS Safety Report 6227784-4 (Version None)
Quarter: 2009Q2

REPORT INFORMATION
  Report Type: 
  Country: None (occurrence: None)
  Receive Date: 20090612
  Receipt Date: 20090603
  Transmission Date: 20091009
  Serious: Yes (Hospitalization)
  Sender: FDA-Public Use
  Company Number: PHEH2009US05682

PATIENT
  Sex: Female

DRUGS (1)
  1. DIOVAN [Suspect]
     Indication: HYPERTENSION
     Dosage: UNK
     Dates: end: 20080101

REACTIONS (4)
  - BLOOD PRESSURE INCREASED [None]
  - MEDICAL DEVICE IMPLANTATION [None]
  - MIGRAINE [None]
  - VOMITING [None]
